FAERS Safety Report 4811771-4 (Version None)
Quarter: 2005Q4

REPORT INFORMATION
  Report Type: 
  Country: None (occurrence: None)
  Receive Date: 20051028
  Receipt Date: 20051021
  Transmission Date: 20060501
  Serious: Yes (Other)
  Sender: FDA-Public Use
  Company Number: JP-SOLVAY-00305003472

PATIENT
  Age: 50 Year
  Sex: Male

DRUGS (3)
  1. LENDORMIN [Concomitant]
     Indication: ILL-DEFINED DISORDER
     Dosage: DAILY DOSE: 1 MILLIGRAM(S)
     Route: 048
  2. LUVOX [Suspect]
     Indication: ILL-DEFINED DISORDER
     Dosage: DAILY DOSE: 75 MILLIGRAM(S)
     Route: 048
  3. DEPAS [Concomitant]
     Indication: ILL-DEFINED DISORDER
     Dosage: DAILY DOSE: 1 MILLIGRAM(S)
     Route: 048

REACTIONS (1)
  - RHABDOMYOLYSIS [None]
